FAERS Safety Report 19443466 (Version 1)
Quarter: 2021Q2

REPORT INFORMATION
  Report Type: Report from Study
  Country: US (occurrence: US)
  Receive Date: 20210621
  Receipt Date: 20210621
  Transmission Date: 20210717
  Serious: Yes (Hospitalization)
  Sender: FDA-Public Use
  Company Number: US-AMGEN-USASL2021070549

PATIENT
  Age: 61 Year
  Sex: Female

DRUGS (1)
  1. REPATHA [Suspect]
     Active Substance: EVOLOCUMAB
     Indication: HYPERLIPIDAEMIA
     Dosage: 140 MILLIGRAM, Q2WK
     Route: 065
     Dates: start: 20210504

REACTIONS (10)
  - Disturbance in attention [Unknown]
  - Contusion [Unknown]
  - Balance disorder [Unknown]
  - Oropharyngeal pain [Unknown]
  - Injection site bruising [Unknown]
  - Headache [Unknown]
  - Back pain [Recovered/Resolved]
  - Fall [Unknown]
  - Accident [Unknown]
  - Anxiety [Unknown]

NARRATIVE: CASE EVENT DATE: 20210505
